FAERS Safety Report 6248259-2 (Version None)
Quarter: 2009Q2

REPORT INFORMATION
  Report Type: 
  Country: None (occurrence: None)
  Receive Date: 20090625
  Receipt Date: 20090625
  Transmission Date: 20091009
  Serious: Yes (Other)
  Sender: FDA-Public Use
  Company Number: None

PATIENT
  Age: 69 Year
  Sex: Female
  Weight: 57.6068 kg

DRUGS (1)
  1. FOSAMAX [Suspect]
     Indication: OSTEOPOROSIS
     Dosage: 70 MG WEEKLY ORALLY
     Route: 048
     Dates: start: 20080729

REACTIONS (2)
  - PRODUCT SUBSTITUTION ISSUE [None]
  - SKIN BURNING SENSATION [None]
